FAERS Safety Report 8868675 (Version 1)
Quarter: 2012Q4

REPORT INFORMATION
  Report Type: 
  Country: FR (occurrence: FR)
  Receive Date: 20121024
  Receipt Date: 20121024
  Transmission Date: 20130627
  Serious: Yes (Hospitalization, Other)
  Sender: FDA-Public Use
  Company Number: FR-ASTRAZENECA-2012SE72435

PATIENT
  Age: 20283 Day
  Sex: Female
  Weight: 58 kg

DRUGS (8)
  1. INEXIUM [Suspect]
     Indication: GASTRIC ULCER PERFORATION
     Route: 042
     Dates: start: 20120816, end: 20120823
  2. MOPRAL [Suspect]
     Route: 048
  3. INNOHEP [Suspect]
     Route: 058
     Dates: start: 20120817, end: 20120821
  4. FLAGYL [Concomitant]
     Dates: start: 20120816, end: 20120824
  5. ROCEPHINE [Concomitant]
     Dates: start: 20120816, end: 20120824
  6. MORPHINE [Concomitant]
     Dates: start: 20120816, end: 20120817
  7. PARACETAMOL [Concomitant]
     Route: 042
     Dates: start: 20120816, end: 20120825
  8. NEFOPAM [Concomitant]
     Indication: ANALGESIC THERAPY
     Dates: start: 20120816, end: 20120819

REACTIONS (2)
  - Gastric ulcer perforation [Recovered/Resolved]
  - Thrombocytopenia [Recovered/Resolved]
